FAERS Safety Report 8859392 (Version 3)
Quarter: 2015Q2

REPORT INFORMATION
  Report Type: Spontaneous
  Country: US (occurrence: US)
  Receive Date: 20121024
  Receipt Date: 20150424
  Transmission Date: 20150821
  Serious: Yes (Disabling)
  Sender: FDA-Public Use
  Company Number: US-MERCK-1210USA007113

PATIENT
  Sex: Male

DRUGS (3)
  1. PROSCAR [Suspect]
     Active Substance: FINASTERIDE
     Indication: ALOPECIA
     Dosage: 1 MG, UNK
     Route: 048
     Dates: start: 200911
  2. FINASTERIDE. [Suspect]
     Active Substance: FINASTERIDE
     Indication: ALOPECIA
     Dosage: 5 MG, DAILY
     Route: 048
     Dates: start: 20070105, end: 20120323
  3. PROPECIA [Suspect]
     Active Substance: FINASTERIDE
     Indication: ANDROGENETIC ALOPECIA
     Dosage: 1 MG, UNK
     Route: 048
     Dates: start: 20050531, end: 20051125

REACTIONS (17)
  - Ejaculation disorder [Unknown]
  - Hair disorder [Unknown]
  - Drug administration error [Unknown]
  - Libido decreased [Unknown]
  - Breast swelling [Unknown]
  - Sexual dysfunction [Unknown]
  - Ejaculation failure [Unknown]
  - Depression [Not Recovered/Not Resolved]
  - Testicular pain [Unknown]
  - Testicular atrophy [Unknown]
  - Wrong technique in drug usage process [Unknown]
  - Penile curvature [Unknown]
  - Hypogonadism [Unknown]
  - Dermal cyst [Unknown]
  - Anxiety [Not Recovered/Not Resolved]
  - Cognitive disorder [Unknown]
  - Erectile dysfunction [Unknown]

NARRATIVE: CASE EVENT DATE: 200911
